FAERS Safety Report 15691421 (Version 2)
Quarter: 2019Q2

REPORT INFORMATION
  Report Type: Spontaneous
  Country: US (occurrence: US)
  Receive Date: 20181205
  Receipt Date: 20190509
  Transmission Date: 20190711
  Serious: Yes (Congenital Anomaly, Other)
  Sender: FDA-Public Use
  Company Number: US-ASTRAZENECA-2018SF55771

PATIENT
  Sex: Female
  Weight: 73.5 kg

DRUGS (20)
  1. DOXEPIN [Concomitant]
     Active Substance: DOXEPIN
  2. PROPAFENONE. [Concomitant]
     Active Substance: PROPAFENONE
  3. HYDROXYZINE [Concomitant]
     Active Substance: HYDROXYZINE HYDROCHLORIDE
  4. ELIQUIS [Concomitant]
     Active Substance: APIXABAN
  5. METOPROLOL. [Concomitant]
     Active Substance: METOPROLOL
  6. NIFEDIPINE. [Concomitant]
     Active Substance: NIFEDIPINE
  7. NEXIUM [Suspect]
     Active Substance: ESOMEPRAZOLE MAGNESIUM
     Route: 048
     Dates: start: 2012, end: 2015
  8. OMEPRAZOLE. [Suspect]
     Active Substance: OMEPRAZOLE
     Dosage: 20 MG DAILY
     Route: 048
     Dates: start: 201104, end: 201209
  9. PRAVASTATIN. [Concomitant]
     Active Substance: PRAVASTATIN
  10. LOSARTAN. [Concomitant]
     Active Substance: LOSARTAN
  11. TYLENOL [Concomitant]
     Active Substance: ACETAMINOPHEN
  12. ATORVASTATIN [Concomitant]
     Active Substance: ATORVASTATIN
  13. LINZESS [Concomitant]
     Active Substance: LINACLOTIDE
  14. NEXIUM [Suspect]
     Active Substance: ESOMEPRAZOLE MAGNESIUM
     Dosage: 40 MG DAILY
     Route: 048
     Dates: start: 201210, end: 201407
  15. NEXIUM [Suspect]
     Active Substance: ESOMEPRAZOLE MAGNESIUM
     Dosage: 40 MG DAILY
     Route: 048
     Dates: start: 201412, end: 201506
  16. LYRICA [Concomitant]
     Active Substance: PREGABALIN
  17. OMEPRAZOLE. [Suspect]
     Active Substance: OMEPRAZOLE
     Dosage: 20 MG DAILY
     Route: 048
     Dates: start: 201009, end: 201103
  18. ESCITALOPRAM [Concomitant]
     Active Substance: ESCITALOPRAM OXALATE
  19. TEMAZEPAM. [Concomitant]
     Active Substance: TEMAZEPAM
  20. JANUVIA [Concomitant]
     Active Substance: SITAGLIPTIN PHOSPHATE

REACTIONS (2)
  - Chronic kidney disease [Not Recovered/Not Resolved]
  - Acute kidney injury [Not Recovered/Not Resolved]
